FAERS Safety Report 7361233-8 (Version None)
Quarter: 2011Q1

REPORT INFORMATION
  Report Type: 
  Country: None (occurrence: None)
  Receive Date: 20110318
  Receipt Date: 20110227
  Transmission Date: 20110831
  Serious: No
  Sender: FDA-Public Use
  Company Number: US-BAYER-2011-019611

PATIENT
  Sex: Female
  Weight: 63 kg

DRUGS (2)
  1. ALEVE (CAPLET) [Suspect]
     Dosage: 1980 MG, ONCE
     Dates: start: 20110227
  2. CONTRACEPTIVES NOS [Concomitant]
     Dosage: SHOT

REACTIONS (2)
  - PAIN [None]
  - ABDOMINAL PAIN [None]
